FAERS Safety Report 18074191 (Version 1)
Quarter: 2020Q3

REPORT INFORMATION
  Report Type: Spontaneous
  Country: FR (occurrence: FR)
  Receive Date: 20200727
  Receipt Date: 20200727
  Transmission Date: 20201103
  Serious: Yes (Hospitalization)
  Sender: FDA-Public Use
  Company Number: FR-PFIZER INC-2020282854

PATIENT
  Age: 34 Year
  Sex: Female

DRUGS (5)
  1. CANNABIS [Suspect]
     Active Substance: CANNABIS SATIVA SUBSP. INDICA TOP
     Dosage: UNK
     Route: 055
     Dates: start: 202003
  2. XANAX [Suspect]
     Active Substance: ALPRAZOLAM
     Indication: INTENTIONAL PRODUCT MISUSE
     Dosage: UP TO 15 TABLETS PER DAY
     Route: 048
     Dates: start: 2018
  3. ESCITALOPRAM [Concomitant]
     Active Substance: ESCITALOPRAM OXALATE
     Dosage: UNK
     Route: 048
  4. KLIPAL CODEINE [Suspect]
     Active Substance: ACETAMINOPHEN\CODEINE PHOSPHATE
     Indication: INTENTIONAL PRODUCT MISUSE
     Dosage: UP TO 15 TABLETS PER DAY
     Route: 048
     Dates: start: 2010
  5. LORAZEPAM. [Concomitant]
     Active Substance: LORAZEPAM
     Dosage: UNK
     Route: 048

REACTIONS (3)
  - Intentional overdose [Unknown]
  - Drug dependence [Recovering/Resolving]
  - Housebound [Unknown]

NARRATIVE: CASE EVENT DATE: 202003
